FAERS Safety Report 11702139 (Version 3)
Quarter: 2016Q1

REPORT INFORMATION
  Report Type: Report from Study
  Country: JP (occurrence: JP)
  Receive Date: 20151105
  Receipt Date: 20160328
  Transmission Date: 20160525
  Serious: Yes (Hospitalization, Other)
  Sender: FDA-Public Use
  Company Number: JP-REGENERON PHARMACEUTICALS, INC.-2015-13445

PATIENT

DRUGS (47)
  1. DIOVAN [Concomitant]
     Active Substance: VALSARTAN
     Indication: HYPERTENSION
     Dosage: 160 MG, QD
     Route: 048
     Dates: start: 20130325
  2. PLAVIX [Concomitant]
     Active Substance: CLOPIDOGREL BISULFATE
     Indication: CORONARY ARTERY STENOSIS
  3. SOLDEM 1 [Concomitant]
     Active Substance: DEXTROSE\SODIUM CHLORIDE\SODIUM LACTATE
     Indication: ELECTROLYTE SUBSTITUTION THERAPY
     Dosage: 2000 ML, CI
     Route: 042
     Dates: start: 20151121, end: 20151122
  4. CERCINE [Concomitant]
     Active Substance: DIAZEPAM
     Indication: ANAESTHETIC PREMEDICATION
     Dosage: 2 MG, QD
     Route: 048
     Dates: start: 20151121, end: 20151121
  5. YOUPATCH [Concomitant]
     Indication: LOCAL ANAESTHESIA
     Dosage: 18 MG, QD
     Route: 062
     Dates: start: 20151121, end: 20151121
  6. PLACEBO [Suspect]
     Active Substance: UNSPECIFIED INGREDIENT
  7. VOGLIBOSE [Concomitant]
     Active Substance: VOGLIBOSE
     Indication: DIABETES MELLITUS
     Dosage: 0.2 MG, TID
     Route: 048
     Dates: start: 2012
  8. LIOVEL [Concomitant]
     Active Substance: ALOGLIPTIN BENZOATE\PIOGLITAZONE HYDROCHLORIDE
     Indication: DIABETES MELLITUS
     Dosage: 67.06 MG, QD
     Route: 048
     Dates: start: 20130325
  9. BAYASPIRIN [Concomitant]
     Active Substance: ASPIRIN
     Dosage: 100 MG, QD
     Route: 048
     Dates: start: 20151123
  10. APPAMIDE PLUS [Concomitant]
     Indication: FUNDOSCOPY
     Dosage: OPTIMUM DOSE ONCE PER ONCE PER INDIRECT OPHTHALMOSCOPY
     Route: 047
     Dates: start: 20150528
  11. EYLEA [Suspect]
     Active Substance: AFLIBERCEPT
     Indication: POLYPOIDAL CHOROIDAL VASCULOPATHY
     Dosage: 50 ?L MICROLITRE(S), ONCE, VISIT 2, RIGHT EYE
     Route: 031
     Dates: start: 20150622, end: 20150622
  12. OPHTHAGREEN [Concomitant]
     Indication: OPHTHALMOLOGICAL EXAMINATION
     Dosage: 25MG ONCE PER ICGA
     Route: 042
     Dates: start: 20150609
  13. LEVOFLOXACIN. [Concomitant]
     Active Substance: LEVOFLOXACIN
     Indication: INFECTION PROPHYLAXIS
     Dosage: RIGHT EYE, OPTIMUM DOSE  ONCE PER STUDY DRUG INJECTION
     Route: 047
  14. LEVOFLOXACIN. [Concomitant]
     Active Substance: LEVOFLOXACIN
     Dosage: RIGHT EYE, OPTIMUM DOSE  ONCE PER STUDY DRUG INJECTION
     Route: 047
  15. LEVOFLOXACIN. [Concomitant]
     Active Substance: LEVOFLOXACIN
     Dosage: RIGHT EYE, OPTIMUM DOSE  ONCE PER STUDY DRUG INJECTION
     Route: 047
  16. EYLEA [Suspect]
     Active Substance: AFLIBERCEPT
     Dosage: 50 ?L MICROLITRE(S), ONCE, VISIT 4, RIGHT EYE
     Dates: start: 20150810, end: 20150810
  17. VISUDYNE [Suspect]
     Active Substance: VERTEPORFIN
     Indication: PRODUCT USED FOR UNKNOWN INDICATION
  18. BAYASPIRIN [Concomitant]
     Active Substance: ASPIRIN
     Indication: THROMBOSIS PROPHYLAXIS
     Dosage: 100 MG, QD
     Dates: start: 20130415
  19. XYLOCAIN                           /00033401/ [Concomitant]
     Active Substance: LIDOCAINE
     Indication: ANAESTHESIA
     Dosage: OPTIMUM DOSE  ONCE PER STUDY DRUG INJECTION
     Route: 047
  20. HEPARIN SODIUM. [Concomitant]
     Active Substance: HEPARIN SODIUM
     Indication: THROMBOSIS PROPHYLAXIS
     Dosage: 15000 IU, CI
     Route: 042
     Dates: start: 20151121, end: 20151121
  21. EYLEA [Suspect]
     Active Substance: AFLIBERCEPT
     Dosage: 50 ?L MICROLITRE(S), ONCE, VISIT 3, RIGHT EYE
     Route: 031
     Dates: start: 20150713, end: 20150713
  22. EYLEA [Suspect]
     Active Substance: AFLIBERCEPT
     Dosage: 50 ?L MICROLITRE(S), ONCE, VISIT 6, RIGHT EYE
     Route: 031
     Dates: start: 20151005, end: 20151005
  23. EYLEA [Suspect]
     Active Substance: AFLIBERCEPT
     Dosage: 50 ?L MICROLITRE(S), ONCE, VISIT 7, RIGHT EYE
     Route: 031
     Dates: start: 21051207
  24. DILATE PLUS [Concomitant]
     Indication: FUNDOSCOPY
     Dosage: OPTIMUM DOSE ONCE PER ONCE PER INDIRECT OPHTHALMOSCOPY
     Route: 047
     Dates: start: 20150528
  25. DILATE PLUS [Concomitant]
     Indication: MYDRIASIS
     Dosage: OPTIMUM DOSE ONCE PER ONCE PER ONCE PER STUDY DRUG INJECTION
     Route: 047
     Dates: start: 20150619
  26. BENOXIL [Concomitant]
     Active Substance: BENOXINATE HYDROCHLORIDE
     Indication: ANAESTHESIA
  27. APPAMIDE PLUS [Concomitant]
     Indication: OPHTHALMOLOGICAL EXAMINATION
     Dosage: OPTIMUM DOSE ONCE PER FA,FP
     Route: 047
     Dates: start: 20150609
  28. SELOKEEN [Concomitant]
     Active Substance: METOPROLOL
     Indication: COMPUTERISED TOMOGRAM
     Dosage: 20 MG, ONCE
     Route: 048
     Dates: start: 20151009, end: 20151009
  29. CELESTAMINE [Concomitant]
     Active Substance: BETAMETHASONE\DEXCHLORPHENIRAMINE MALEATE
     Indication: PROPHYLAXIS
     Dosage: 2.25 MG, QD
     Route: 048
     Dates: start: 20151121, end: 20151121
  30. DILATE PLUS [Concomitant]
     Indication: OPHTHALMOLOGICAL EXAMINATION
     Dosage: OPTIMUM DOSE ONCE PER FA,FP
     Route: 047
     Dates: start: 20150609
  31. BENOXIL [Concomitant]
     Active Substance: BENOXINATE HYDROCHLORIDE
     Indication: ANAESTHESIA PROCEDURE
     Dosage: OPTIMUM DOSE ONCE PER STUDY DRUG INJECTION
     Route: 047
     Dates: start: 20150619
  32. XYLOCAINE [Concomitant]
     Active Substance: LIDOCAINE HYDROCHLORIDE
     Indication: ANAESTHESIA PROCEDURE
     Dosage: OPTIMUM DOSE, QD
     Route: 042
     Dates: start: 20151121, end: 20151121
  33. PLAVIX [Concomitant]
     Active Substance: CLOPIDOGREL BISULFATE
     Indication: THROMBOSIS PROPHYLAXIS
     Dosage: 75 MG, QD
     Dates: start: 20151026
  34. BLINDED LASER [Suspect]
     Active Substance: DEVICE
  35. VERTEPORFIN [Concomitant]
     Active Substance: VERTEPORFIN
  36. NEXIUM [Concomitant]
     Active Substance: ESOMEPRAZOLE MAGNESIUM
     Indication: PROPHYLAXIS AGAINST GASTROINTESTINAL ULCER
     Dosage: 10 MG, QD
     Route: 048
     Dates: start: 20130415
  37. FLUORESCITE [Concomitant]
     Active Substance: FLUORESCEIN SODIUM
     Indication: ANGIOGRAM RETINA
     Dosage: 250 MG, ONCE
     Route: 042
     Dates: start: 20150609
  38. TARIVID                            /00731801/ [Concomitant]
     Active Substance: OFLOXACIN
     Indication: INFECTION PROPHYLAXIS
     Dosage: OPTIMUM DOSE  ONCE PER STUDY DRUG INJECTION
     Dates: start: 20150619
  39. APPAMIDE PLUS [Concomitant]
     Indication: MYDRIASIS
     Dosage: OPTIMUM DOSE ONCE PER ONCE PER ONCE PER STUDY DRUG INJECTION
     Route: 047
     Dates: start: 20150619
  40. XYLOCAINE [Concomitant]
     Active Substance: LIDOCAINE HYDROCHLORIDE
     Indication: ANAESTHESIA
     Dosage: OPTIMUM DOSE  ONCE PER STUDY DRUG INJECTION
     Route: 047
  41. NITOROL [Concomitant]
     Active Substance: ISOSORBIDE DINITRATE
     Indication: ARTERIOSPASM CORONARY
     Dosage: `5 MG, QD
     Route: 042
     Dates: start: 20151121, end: 20151121
  42. AMLODIPIN                          /00972401/ [Concomitant]
     Active Substance: AMLODIPINE BESYLATE
     Indication: HYPERTENSION
     Dosage: 5 MG, QD
     Route: 048
     Dates: start: 20130325
  43. TRUSOPT [Concomitant]
     Active Substance: DORZOLAMIDE HYDROCHLORIDE
     Indication: GLAUCOMA
     Dosage: 1 GTT, BID, EXCEPT FOR IVT INJECTION DAY
     Route: 047
     Dates: start: 20110401
  44. XALATAN [Concomitant]
     Active Substance: LATANOPROST
     Indication: GLAUCOMA
     Dosage: 1DROPS QD EXCEPT FOR IVT INJECTION DAY
     Route: 047
     Dates: start: 20090602
  45. IOPAMIRON 370 [Concomitant]
     Indication: ANGIOGRAM
     Dosage: 85 ML, ONCE
     Route: 048
     Dates: start: 20151009, end: 20151009
  46. IOPAMIRON 370 [Concomitant]
     Indication: COMPUTERISED TOMOGRAM
     Dosage: OPTIMUM DOSE, QD
     Route: 042
     Dates: start: 20151121, end: 20151121
  47. CORBETA [Concomitant]
     Indication: COMPUTERISED TOMOGRAM
     Dosage: 6 ML, UNK
     Route: 042
     Dates: start: 20151009, end: 20151009

REACTIONS (1)
  - Coronary artery stenosis [Recovered/Resolved]

NARRATIVE: CASE EVENT DATE: 20151009
